FAERS Safety Report 7633968-0 (Version None)
Quarter: 2011Q3

REPORT INFORMATION
  Report Type: 
  Country: None (occurrence: None)
  Receive Date: 20110725
  Receipt Date: 20110713
  Transmission Date: 20111222
  Serious: Yes (Other)
  Sender: FDA-Public Use
  Company Number: CA-JNJFOC-20110200574

PATIENT
  Sex: Male
  Weight: 73.8 kg

DRUGS (4)
  1. REMICADE [Suspect]
     Indication: RHEUMATOID ARTHRITIS
     Route: 042
     Dates: start: 20100617
  2. METHOTREXATE [Concomitant]
  3. PREDNISONE [Concomitant]
  4. REMICADE [Suspect]
     Route: 042
     Dates: start: 20110111

REACTIONS (1)
  - HIP ARTHROPLASTY [None]
